FAERS Safety Report 9204199 (Version 1)
Quarter: 2013Q2

REPORT INFORMATION
  Report Type: Spontaneous
  Country: GB (occurrence: GB)
  Receive Date: 20130402
  Receipt Date: 20130402
  Transmission Date: 20140414
  Serious: Yes (Death, Life-Threatening, Other)
  Sender: FDA-Public Use
  Company Number: GB-PFIZER INC-2013070160

PATIENT
  Age: 65 Year
  Sex: Female
  Weight: 72 kg

DRUGS (3)
  1. TAZOCIN [Suspect]
     Indication: INFECTION
     Dosage: UNK
     Route: 042
     Dates: start: 20120417
  2. TACROLIMUS [Concomitant]
     Indication: RENAL TRANSPLANT
  3. VALGANCICLOVIR [Concomitant]
     Indication: CYTOMEGALOVIRUS GASTROENTERITIS

REACTIONS (2)
  - Anaphylactic reaction [Fatal]
  - Pulseless electrical activity [Fatal]
